FAERS Safety Report 9307466 (Version 1)
Quarter: 2013Q2

REPORT INFORMATION
  Report Type: Spontaneous
  Country: GB (occurrence: GB)
  Receive Date: 20130524
  Receipt Date: 20130524
  Transmission Date: 20140414
  Serious: Yes (Other)
  Sender: FDA-Public Use
  Company Number: GB-009507513-1305GBR013437

PATIENT
  Age: 65 Year
  Sex: Female
  Weight: 79 kg

DRUGS (8)
  1. DEXAMETHASONE [Suspect]
     Indication: PLASMA CELL MYELOMA
     Dosage: 20 MG, UNK
     Route: 048
  2. REVLIMID [Suspect]
     Indication: PLASMA CELL MYELOMA
     Dosage: 10 MG, 21 / 28 DAYS
     Route: 048
  3. ACYCLOVIR [Concomitant]
     Dosage: 400 MG, 2/1 DAY
     Route: 048
  4. ALLOPURINOL [Concomitant]
     Dosage: 100 MG, UNK
     Route: 048
  5. ASPIRINE [Concomitant]
     Dosage: 75 MG, UNK
     Route: 048
  6. ENOXAPARIN SODIUM [Concomitant]
     Dosage: 40 MG, 1/1 DAYS
     Route: 058
  7. FLUCONAZOLE [Concomitant]
     Dosage: 100 MG, 1/1 DAYS
     Route: 048
  8. OMEPRAZOLE [Concomitant]
     Dosage: 20 MG, 1/1 DAYS
     Route: 048

REACTIONS (1)
  - Glomerular filtration rate decreased [Unknown]
